FAERS Safety Report 13547922 (Version 6)
Quarter: 2018Q1

REPORT INFORMATION
  Report Type: Spontaneous
  Country: JP (occurrence: JP)
  Receive Date: 20170516
  Receipt Date: 20180117
  Transmission Date: 20180508
  Serious: Yes (Hospitalization)
  Sender: FDA-Public Use
  Company Number: JP-009507513-1705JPN000810J

PATIENT
  Age: 60 Year
  Sex: Male
  Weight: 69 kg

DRUGS (8)
  1. VOGLIBOSE [Concomitant]
     Active Substance: VOGLIBOSE
     Dosage: 0.3 MG, BID
     Route: 048
  2. MEDICON [Concomitant]
     Active Substance: DEXTROMETHORPHAN HYDROBROMIDE
     Indication: SQUAMOUS CELL CARCINOMA OF LUNG
     Dosage: 30 MG, TID
     Route: 048
  3. BENZBROMARONE [Concomitant]
     Active Substance: BENZBROMARONE
     Dosage: 50 MG, QD
     Route: 048
  4. CARBAZOCHROME SULFONATE NA [Concomitant]
     Indication: SQUAMOUS CELL CARCINOMA OF LUNG
     Dosage: 10 MG, TID
     Route: 048
  5. CARBOCISTEINE [Concomitant]
     Active Substance: CARBOCYSTEINE
     Indication: SQUAMOUS CELL CARCINOMA OF LUNG
     Dosage: 500 MG, TID
     Route: 048
  6. TRANSAMIN [Concomitant]
     Active Substance: TRANEXAMIC ACID
     Indication: SQUAMOUS CELL CARCINOMA OF LUNG
     Dosage: 250 MG, TID
     Route: 048
  7. KEYTRUDA [Suspect]
     Active Substance: PEMBROLIZUMAB
     Indication: SQUAMOUS CELL CARCINOMA OF LUNG
     Dosage: 200 MG, Q3W
     Route: 041
     Dates: start: 20170420, end: 20170420
  8. BEZAFIBRATE [Concomitant]
     Active Substance: BEZAFIBRATE
     Dosage: 200 MG, BID
     Route: 048

REACTIONS (1)
  - Hepatic function abnormal [Recovered/Resolved]

NARRATIVE: CASE EVENT DATE: 20170511
